FAERS Safety Report 15309727 (Version 1)
Quarter: 2018Q3

REPORT INFORMATION
  Report Type: Spontaneous
  Country: US (occurrence: US)
  Receive Date: 20180823
  Receipt Date: 20180823
  Transmission Date: 20181010
  Serious: No
  Sender: FDA-Public Use
  Company Number: US-MALLINCKRODT-T201703290

PATIENT
  Sex: Male

DRUGS (10)
  1. OXYCODONE [Suspect]
     Active Substance: OXYCODONE
     Indication: SCOLIOSIS
     Dosage: 30 MG 6 TABLETS PER DAY
     Route: 065
  2. OXYCODONE [Suspect]
     Active Substance: OXYCODONE
     Indication: CERVICAL SPINAL STENOSIS
  3. OXYCODONE [Suspect]
     Active Substance: OXYCODONE
     Indication: INTERVERTEBRAL DISC DEGENERATION
     Dosage: 30 MG, UP TO 6 TIMES PER DAY
     Route: 048
  4. OXYCODONE [Suspect]
     Active Substance: OXYCODONE
     Indication: PAIN
  5. SERC [Concomitant]
     Indication: PRODUCT USED FOR UNKNOWN INDICATION
  6. OXYCODONE [Suspect]
     Active Substance: OXYCODONE
     Indication: PAIN
  7. OXYCODONE [Suspect]
     Active Substance: OXYCODONE
     Indication: SCIATICA
  8. CLONIDINE. [Concomitant]
     Active Substance: CLONIDINE
     Indication: PRODUCT USED FOR UNKNOWN INDICATION
  9. OXYCODONE [Suspect]
     Active Substance: OXYCODONE
     Indication: INTERVERTEBRAL DISC PROTRUSION
  10. OXYCODONE [Suspect]
     Active Substance: OXYCODONE
     Indication: BACK DISORDER

REACTIONS (7)
  - Drug effect incomplete [Unknown]
  - Back pain [Unknown]
  - Bruxism [Recovered/Resolved]
  - Withdrawal syndrome [Unknown]
  - Tardive dyskinesia [Unknown]
  - Asthenia [Unknown]
  - Musculoskeletal discomfort [Unknown]
